FAERS Safety Report 9288885 (Version 1)
Quarter: 2013Q2

REPORT INFORMATION
  Report Type: Report from Study
  Country: BR (occurrence: BR)
  Receive Date: 20130514
  Receipt Date: 20130514
  Transmission Date: 20140414
  Serious: Yes (Hospitalization, Other)
  Sender: FDA-Public Use
  Company Number: PHHY2013BR046797

PATIENT
  Age: 69 Year
  Sex: Male

DRUGS (3)
  1. FORASEQ [Suspect]
     Indication: LUNG DISORDER
     Dosage: 2 DF, QD (2 CAPSULES OF EACH TREATMENT, TWICE DAILY)
  2. DIOVAN [Concomitant]
     Indication: HYPERTENSION
     Dosage: 1 DF,  (160 MG, 1 TABLET DAILY)
     Route: 048
     Dates: start: 20130425
  3. GLIFAGE [Concomitant]
     Indication: DIABETES MELLITUS
     Dosage: 1 DF, (750 MG, 1 TABLET DAILY)
     Route: 048
     Dates: start: 20130425

REACTIONS (4)
  - Infarction [Recovered/Resolved]
  - Visual acuity reduced [Not Recovered/Not Resolved]
  - Asthenopia [Not Recovered/Not Resolved]
  - Diabetes mellitus [Not Recovered/Not Resolved]
